FAERS Safety Report 6018279-1 (Version None)
Quarter: 2008Q4

REPORT INFORMATION
  Report Type: 
  Country: None (occurrence: None)
  Receive Date: 20081223
  Receipt Date: 20081216
  Transmission Date: 20090506
  Serious: Yes (Other)
  Sender: FDA-Public Use
  Company Number: PHEH2005US08596

PATIENT
  Sex: Male

DRUGS (5)
  1. ZOMETA [Suspect]
     Indication: MULTIPLE MYELOMA
     Dosage: 4 MG, Q MONTH
     Route: 042
     Dates: start: 20020927, end: 20080930
  2. OXYCONTIN [Concomitant]
  3. CELEBREX [Concomitant]
  4. THALIDOMIDE [Concomitant]
  5. VINCRISTINE [Suspect]

REACTIONS (8)
  - BONE DISORDER [None]
  - ENDODONTIC PROCEDURE [None]
  - EXOSTOSIS [None]
  - FISTULA [None]
  - INFECTION [None]
  - ORAL DISORDER [None]
  - OSTEONECROSIS [None]
  - TOOTH DISORDER [None]
